FAERS Safety Report 11531899 (Version 4)
Quarter: 2015Q4

REPORT INFORMATION
  Report Type: Report from Study
  Country: ES (occurrence: ES)
  Receive Date: 20150921
  Receipt Date: 20151029
  Transmission Date: 20160304
  Serious: Yes (Other)
  Sender: FDA-Public Use
  Company Number: ES-AMGEN-ESPSL2015093051

PATIENT
  Age: 72 Year
  Sex: Female

DRUGS (5)
  1. CARDIL                             /00489702/ [Concomitant]
     Indication: BLOOD CHOLESTEROL
  2. EUTIROX [Concomitant]
     Active Substance: LEVOTHYROXINE SODIUM
     Indication: HYPOTHYROIDISM
  3. PROLIA [Suspect]
     Active Substance: DENOSUMAB
     Indication: OSTEOPOROSIS POSTMENOPAUSAL
     Dosage: 60 MG, Q6MO
     Route: 058
     Dates: start: 20140415
  4. MASTICAL [Concomitant]
  5. HIDROFEROL [Concomitant]
     Active Substance: CALCIFEDIOL

REACTIONS (14)
  - Skin mass [Recovered/Resolved]
  - Peripheral coldness [Unknown]
  - Bone swelling [Unknown]
  - Gait disturbance [Unknown]
  - Nerve compression [Unknown]
  - Bursitis [Unknown]
  - Drug hypersensitivity [Unknown]
  - Pain in extremity [Not Recovered/Not Resolved]
  - Benign gastric neoplasm [Recovered/Resolved]
  - Fatigue [Unknown]
  - Intervertebral disc protrusion [Unknown]
  - Groin pain [Unknown]
  - Muscle spasms [Unknown]
  - Arthralgia [Recovering/Resolving]

NARRATIVE: CASE EVENT DATE: 201507
